FAERS Safety Report 19257471 (Version 1)
Quarter: 2021Q2

REPORT INFORMATION
  Report Type: Spontaneous
  Country: US (occurrence: US)
  Receive Date: 20210513
  Receipt Date: 20210513
  Transmission Date: 20210717
  Serious: Yes (Other)
  Sender: FDA-Public Use
  Company Number: US-ROCHE-2825059

PATIENT
  Sex: Female
  Weight: 77.18 kg

DRUGS (1)
  1. OCREVUS [Suspect]
     Active Substance: OCRELIZUMAB
     Indication: MULTIPLE SCLEROSIS
     Route: 065

REACTIONS (7)
  - Feeling abnormal [Unknown]
  - Cerebral disorder [Unknown]
  - Malaise [Unknown]
  - Suicidal ideation [Unknown]
  - Paraesthesia [Unknown]
  - Fatigue [Unknown]
  - Hyperhidrosis [Unknown]
